FAERS Safety Report 5822687-9 (Version None)
Quarter: 2008Q3

REPORT INFORMATION
  Report Type: 
  Country: None (occurrence: None)
  Receive Date: 20080718
  Receipt Date: 20070904
  Transmission Date: 20090109
  Serious: No
  Sender: FDA-Public Use
  Company Number: 2007PV000035

PATIENT
  Age: 45 Year
  Sex: Female

DRUGS (2)
  1. DEPODUR [Suspect]
     Indication: PAIN MANAGEMENT
     Dosage: 7.5 MG;1X;INTH
     Route: 037
  2. FENTANYL [Concomitant]

REACTIONS (5)
  - HYPERTENSION [None]
  - MEDICATION ERROR [None]
  - NAUSEA [None]
  - SEDATION [None]
  - TACHYCARDIA [None]
